FAERS Safety Report 23240385 (Version 1)
Quarter: 2023Q4

REPORT INFORMATION
  Report Type: Spontaneous
  Country: US (occurrence: None)
  Receive Date: 20231129
  Receipt Date: 20231129
  Transmission Date: 20240110
  Serious: Yes (Hospitalization)
  Sender: FDA-Public Use
  Company Number: None

PATIENT
  Sex: Female

DRUGS (9)
  1. AMOXICILLIN [Suspect]
     Active Substance: AMOXICILLIN
     Indication: Product used for unknown indication
     Dosage: OTHER FREQUENCY : Q6HOURS ;?
     Route: 048
     Dates: start: 202311
  2. KETOCONAZOLE CRE [Concomitant]
  3. VALACYCLOVIR [Concomitant]
  4. HYDROXYZINE PAMOATE [Concomitant]
  5. DOVATO [Concomitant]
  6. LISINOPRIL [Concomitant]
  7. SYMBICORT MDI INHALER [Concomitant]
  8. GABAPENTIN [Concomitant]
     Active Substance: GABAPENTIN
  9. TIZANIDINE HCL [Concomitant]

REACTIONS (4)
  - Gastritis [None]
  - Intestinal obstruction [None]
  - Staphylococcal infection [None]
  - Gastrointestinal motility disorder [None]
